FAERS Safety Report 8210142-0 (Version None)
Quarter: 2012Q1

REPORT INFORMATION
  Report Type: 
  Country: None (occurrence: None)
  Receive Date: 20120314
  Receipt Date: 20110725
  Transmission Date: 20120608
  Serious: No
  Sender: FDA-Public Use
  Company Number: US-ASTRAZENECA-2011SE44486

PATIENT
  Sex: Female

DRUGS (2)
  1. METOPROLOL SUCCINATE [Suspect]
     Indication: MITRAL VALVE DISEASE
     Route: 048
  2. METOPROLOL SUCCINATE [Suspect]
     Indication: CARDIAC FIBRILLATION
     Route: 048

REACTIONS (2)
  - CIRCUMSTANCE OR INFORMATION CAPABLE OF LEADING TO MEDICATION ERROR [None]
  - PALPITATIONS [None]
